FAERS Safety Report 9793324 (Version 1)
Quarter: 2014Q1

REPORT INFORMATION
  Report Type: Report from Study
  Country: CA (occurrence: CA)
  Receive Date: 20140102
  Receipt Date: 20140102
  Transmission Date: 20141002
  Serious: Yes (Other)
  Sender: FDA-Public Use
  Company Number: CA-TEVA-453641USA

PATIENT
  Age: 36 Year
  Sex: Female

DRUGS (2)
  1. COPAXONE [Suspect]
     Dates: start: 20130203, end: 201311
  2. FISH OIL [Concomitant]

REACTIONS (2)
  - Hypersensitivity [Unknown]
  - Respiratory disorder [Unknown]
